FAERS Safety Report 23338322 (Version 1)
Quarter: 2023Q4

REPORT INFORMATION
  Report Type: Spontaneous
  Country: US (occurrence: US)
  Receive Date: 20231226
  Receipt Date: 20231226
  Transmission Date: 20240110
  Serious: No
  Sender: FDA-Public Use
  Company Number: US-AMGEN-USASP2023229314

PATIENT
  Age: 52 Year
  Sex: Male

DRUGS (1)
  1. REPATHA [Suspect]
     Active Substance: EVOLOCUMAB
     Indication: Blood cholesterol increased
     Dosage: 140 MILLIGRAM, Q2WK
     Route: 058
     Dates: start: 2023, end: 2023

REACTIONS (4)
  - Urticaria [Not Recovered/Not Resolved]
  - Oropharyngeal discomfort [Unknown]
  - Dysphagia [Unknown]
  - Arterial disorder [Unknown]

NARRATIVE: CASE EVENT DATE: 20230101
